FAERS Safety Report 5705996-3 (Version None)
Quarter: 2008Q2

REPORT INFORMATION
  Report Type: 
  Country: None (occurrence: None)
  Receive Date: 20080415
  Receipt Date: 20080403
  Transmission Date: 20081010
  Serious: Yes (Other)
  Sender: FDA-Public Use
  Company Number: US-PFIZER INC-2008028069

PATIENT
  Sex: Female
  Weight: 57.727 kg

DRUGS (2)
  1. CHANTIX [Suspect]
     Indication: SMOKING CESSATION THERAPY
     Route: 048
     Dates: start: 20080311, end: 20080321
  2. ORTHO TRI-CYCLEN [Concomitant]
     Route: 048

REACTIONS (14)
  - ABNORMAL DREAMS [None]
  - ANXIETY [None]
  - DEPRESSION [None]
  - DISORIENTATION [None]
  - DRUG INEFFECTIVE [None]
  - FATIGUE [None]
  - FEELING ABNORMAL [None]
  - HALLUCINATION [None]
  - LETHARGY [None]
  - MALAISE [None]
  - MOOD ALTERED [None]
  - NIGHTMARE [None]
  - PARANOIA [None]
  - SOMNOLENCE [None]
